FAERS Safety Report 12647526 (Version 1)
Quarter: 2016Q3

REPORT INFORMATION
  Report Type: Spontaneous
  Country: US (occurrence: None)
  Receive Date: 20160811
  Receipt Date: 20160811
  Transmission Date: 20161109
  Serious: Yes (Disabling)
  Sender: FDA-Public Use
  Company Number: None

PATIENT
  Age: 67 Year
  Sex: Female
  Weight: 78.93 kg

DRUGS (1)
  1. CATARACTIVE 3 (MOXIFLOXACIN 0.5%/BROMFENAC 0.07/DEXAMETHASONE 0.1% [Suspect]
     Active Substance: BROMFENAC\DEXAMETHASONE\MOXIFLOXACIN
     Indication: CATARACT
     Dosage: 4 DROPS DAILY FOR 3 DAYS AND THEN IT MORE DAYS
     Route: 047
     Dates: start: 20150614, end: 20150628

REACTIONS (7)
  - Documented hypersensitivity to administered product [None]
  - Bacterial infection [None]
  - Fungal infection [None]
  - Pain [None]
  - Weight decreased [None]
  - Paraesthesia [None]
  - Vulvovaginal pain [None]

NARRATIVE: CASE EVENT DATE: 20150606
